FAERS Safety Report 5494987-6 (Version None)
Quarter: 2007Q4

REPORT INFORMATION
  Report Type: 
  Country: None (occurrence: None)
  Receive Date: 20071022
  Receipt Date: 20071012
  Transmission Date: 20080405
  Serious: Yes (Hospitalization)
  Sender: FDA-Public Use
  Company Number: IT-1163358

PATIENT
  Age: 72 Year
  Sex: Female

DRUGS (2)
  1. AZOPT (BRINZOLAMIDE) 1% SUSPENSION LOT# 06J19F EYE DROPS, SUSPENSION [Suspect]
     Indication: GLAUCOMA
     Dosage: BID; OPTHALMIC
     Route: 047
     Dates: start: 20050501, end: 20070621
  2. EUTIROX (LEVOTHYROXINE) [Concomitant]

REACTIONS (4)
  - BODY TEMPERATURE DECREASED [None]
  - BRONCHITIS CHRONIC [None]
  - HYPERHIDROSIS [None]
  - LUNG DISORDER [None]
